FAERS Safety Report 8268787-8 (Version None)
Quarter: 2012Q2

REPORT INFORMATION
  Report Type: 
  Country: None (occurrence: None)
  Receive Date: 20120409
  Receipt Date: 20120409
  Transmission Date: 20120825
  Serious: Yes (Other)
  Sender: FDA-Public Use
  Company Number: None

PATIENT
  Age: 52 Year
  Sex: Female
  Weight: 57.152 kg

DRUGS (1)
  1. LEVOFLOXACIN [Suspect]
     Indication: URINARY TRACT INFECTION
     Dosage: 500 MG
     Route: 048
     Dates: start: 20120224, end: 20120228

REACTIONS (9)
  - PAIN IN EXTREMITY [None]
  - INSOMNIA [None]
  - MYALGIA [None]
  - BURNING SENSATION [None]
  - ARTHRALGIA [None]
  - BACK PAIN [None]
  - JOINT CREPITATION [None]
  - MUSCULAR WEAKNESS [None]
  - BONE PAIN [None]
